FAERS Safety Report 5200704-7 (Version None)
Quarter: 2006Q4

REPORT INFORMATION
  Report Type: 
  Country: None (occurrence: None)
  Receive Date: 20061016
  Receipt Date: 20060627
  Transmission Date: 20070319
  Serious: No
  Sender: FDA-Public Use
  Company Number: 2006SP002566

PATIENT
  Age: 54 Year
  Sex: Female
  Weight: 93.441 kg

DRUGS (4)
  1. LUNESTA [Suspect]
     Indication: INSOMNIA
     Dosage: 3 MG; 1X; ORAL; SEE IMAGE
     Route: 048
     Dates: start: 20060613, end: 20060613
  2. LUNESTA [Suspect]
     Indication: INSOMNIA
     Dosage: 3 MG; 1X; ORAL; SEE IMAGE
     Route: 048
     Dates: start: 20060625, end: 20060625
  3. AMBIEN [Concomitant]
  4. TYLENOL [Concomitant]

REACTIONS (1)
  - DYSGEUSIA [None]
